FAERS Safety Report 4756842-6 (Version None)
Quarter: 2005Q3

REPORT INFORMATION
  Report Type: 
  Country: None (occurrence: None)
  Receive Date: 20050830
  Receipt Date: 20050818
  Transmission Date: 20060218
  Serious: Yes (Other)
  Sender: FDA-Public Use
  Company Number: US-JNJFOC-20050804809

PATIENT
  Age: 10 Year
  Sex: Male
  Weight: 24.95 kg

DRUGS (1)
  1. CONCERTA [Suspect]
     Indication: ATTENTION DEFICIT/HYPERACTIVITY DISORDER
     Dosage: THE PATIENT HAS BEEN TAKING CONCERTA FOR ^A COUPLE OF YEARS^
     Route: 048

REACTIONS (1)
  - GLAUCOMA [None]
